FAERS Safety Report 8615148-5 (Version None)
Quarter: 2012Q3

REPORT INFORMATION
  Report Type: 
  Country: None (occurrence: None)
  Receive Date: 20120814
  Receipt Date: 20120814
  Transmission Date: 20120928
  Serious: Yes (Death)
  Sender: FDA-Public Use
  Company Number: None

PATIENT
  Age: 83 Year
  Sex: Male

DRUGS (2)
  1. IODIXANOL [Suspect]
     Indication: SURGERY
     Dosage: 200 ML ONCE IV
     Route: 042
     Dates: start: 20110907, end: 20110907
  2. IODIXANOL [Suspect]
     Indication: CARDIOVASCULAR DISORDER
     Dosage: 200 ML ONCE IV
     Route: 042
     Dates: start: 20110907, end: 20110907

REACTIONS (6)
  - NEPHROPATHY TOXIC [None]
  - PNEUMONIA ASPIRATION [None]
  - RENAL FAILURE ACUTE [None]
  - SEPSIS [None]
  - HAEMODIALYSIS [None]
  - METABOLIC ACIDOSIS [None]
